FAERS Safety Report 16514920 (Version 6)
Quarter: 2020Q1

REPORT INFORMATION
  Report Type: Report from Study
  Country: US (occurrence: US)
  Receive Date: 20190702
  Receipt Date: 20200114
  Transmission Date: 20200409
  Serious: Yes (Hospitalization, Other)
  Sender: FDA-Public Use
  Company Number: US-BAUSCH-BL-2018-019985

PATIENT
  Age: 61 Year
  Sex: Male
  Weight: 113.5 kg

DRUGS (6)
  1. SYPRINE [Suspect]
     Active Substance: TRIENTINE HYDROCHLORIDE
     Indication: HEPATO-LENTICULAR DEGENERATION
     Dosage: STARTED OVER A YEAR AGO (3 TIMES A DAY- 5 DAYS OUT OF THE WEEK)
     Route: 048
  2. WELLBUTRIN [Concomitant]
     Active Substance: BUPROPION HYDROCHLORIDE
     Indication: PRODUCT USED FOR UNKNOWN INDICATION
  3. ZINC. [Concomitant]
     Active Substance: ZINC
     Indication: PRODUCT USED FOR UNKNOWN INDICATION
     Dosage: USED ON THE WEEKENDS
  4. MULTIVITAMINS [Concomitant]
     Active Substance: VITAMINS
     Indication: PRODUCT USED FOR UNKNOWN INDICATION
  5. SYPRINE [Suspect]
     Active Substance: TRIENTINE HYDROCHLORIDE
     Dosage: 750 MG, RESTARTED ON 21/MAR/2019
     Route: 065
  6. MIRTAZAPINE. [Concomitant]
     Active Substance: MIRTAZAPINE
     Indication: PRODUCT USED FOR UNKNOWN INDICATION

REACTIONS (14)
  - Spinal laminectomy [Recovering/Resolving]
  - Memory impairment [Unknown]
  - Tremor [Unknown]
  - Tendon calcification [Unknown]
  - Spinal cord abscess [Recovering/Resolving]
  - Tendon pain [Unknown]
  - Tendon rupture [Unknown]
  - Product storage error [Unknown]
  - Therapy cessation [Unknown]
  - Product availability issue [Unknown]
  - Staphylococcal infection [Unknown]
  - Product dose omission [Unknown]
  - Product supply issue [Unknown]
  - Fatigue [Unknown]

NARRATIVE: CASE EVENT DATE: 20180924
